FAERS Safety Report 15541184 (Version 1)
Quarter: 2018Q4

REPORT INFORMATION
  Report Type: Spontaneous
  Country: US (occurrence: US)
  Receive Date: 20181017
  Receipt Date: 20181017
  Transmission Date: 20190205
  Serious: Yes (Hospitalization, Disabling, Other)
  Sender: FDA-Public Use
  Company Number: None

PATIENT
  Age: 71 Year
  Sex: Female
  Weight: 63.05 kg

DRUGS (8)
  1. IRBESARTAN. [Concomitant]
     Active Substance: IRBESARTAN
  2. MAGNESIUM [Concomitant]
     Active Substance: MAGNESIUM
  3. ATORVASTATIN [Concomitant]
     Active Substance: ATORVASTATIN
  4. VALSARTAN 80MG [Suspect]
     Active Substance: VALSARTAN
     Indication: CHEMOTHERAPY
     Dosage: ?          QUANTITY:1 DF DOSAGE FORM;?
     Route: 048
  5. VALSARTAN 80MG [Suspect]
     Active Substance: VALSARTAN
     Indication: SURGERY
     Dosage: ?          QUANTITY:1 DF DOSAGE FORM;?
     Route: 048
  6. BISOPROPOL FUMARATE [Concomitant]
  7. NATURE MADE FISH OIL [Concomitant]
  8. DIOVAN HCT [Suspect]
     Active Substance: HYDROCHLOROTHIAZIDE\VALSARTAN
     Indication: DRUG THERAPY
     Dosage: ?          QUANTITY:1 DF DOSAGE FORM;?
     Route: 048
     Dates: start: 2013, end: 201808

REACTIONS (3)
  - Abdominal pain [None]
  - Surgery [None]
  - Ovarian cancer stage III [None]

NARRATIVE: CASE EVENT DATE: 201410
